FAERS Safety Report 6167187-4 (Version None)
Quarter: 2009Q2

REPORT INFORMATION
  Report Type: 
  Country: None (occurrence: None)
  Receive Date: 20090424
  Receipt Date: 20090420
  Transmission Date: 20091009
  Serious: Yes (Other)
  Sender: FDA-Public Use
  Company Number: US-ASTRAZENECA-2009UW00357

PATIENT
  Age: 50 Year
  Sex: Female
  Weight: 98.9 kg

DRUGS (5)
  1. SEROQUEL [Suspect]
     Indication: DEPRESSION
     Dosage: 200 MG/400 MG
     Route: 048
     Dates: start: 20040101
  2. ABILIFY [Concomitant]
     Dates: start: 20070101
  3. HALDOL [Concomitant]
     Dates: start: 19960101
  4. XANAX [Concomitant]
  5. CELEXA [Concomitant]
     Dates: start: 20070501

REACTIONS (5)
  - BLOOD CHOLESTEROL INCREASED [None]
  - DIABETES MELLITUS [None]
  - MYOCARDIAL INFARCTION [None]
  - OBESITY [None]
  - SUICIDAL IDEATION [None]
